FAERS Safety Report 16111042 (Version 2)
Quarter: 2019Q2

REPORT INFORMATION
  Report Type: Spontaneous
  Country: US (occurrence: US)
  Receive Date: 20190325
  Receipt Date: 20190608
  Transmission Date: 20190711
  Serious: Yes (Other)
  Sender: FDA-Public Use
  Company Number: US-TEVA-2019-US-1029221

PATIENT
  Age: 73 Year
  Sex: Male

DRUGS (5)
  1. VESICARE [Suspect]
     Active Substance: SOLIFENACIN SUCCINATE
     Indication: HYPERTONIC BLADDER
     Dosage: 10 MILLIGRAM DAILY;
     Route: 065
  2. MYRBETRIQ [Interacting]
     Active Substance: MIRABEGRON
     Indication: HYPERTONIC BLADDER
     Dosage: 25 MILLIGRAM DAILY; FREQUENCY: UNKNOWN.
     Route: 065
  3. MYRBETRIQ [Interacting]
     Active Substance: MIRABEGRON
     Dosage: 50 MICROGRAM DAILY;
     Route: 065
  4. METOPROLOL. [Suspect]
     Active Substance: METOPROLOL
     Indication: PRODUCT USED FOR UNKNOWN INDICATION
     Dosage: DAILY DOSE: UNKNOWN.
     Route: 065
  5. ELIQUIS [Concomitant]
     Active Substance: APIXABAN
     Route: 065

REACTIONS (3)
  - Drug interaction [Unknown]
  - Neuropathy peripheral [Unknown]
  - Urinary tract infection [Unknown]
